FAERS Safety Report 5200467-5 (Version None)
Quarter: 2007Q1

REPORT INFORMATION
  Report Type: 
  Country: None (occurrence: None)
  Receive Date: 20070105
  Receipt Date: 20061228
  Transmission Date: 20070707
  Serious: Yes (Death, Other)
  Sender: FDA-Public Use
  Company Number: TR-MERCK-0612USA04097

PATIENT
  Age: 21 Year
  Sex: Female

DRUGS (4)
  1. DECADRON [Suspect]
     Indication: BURKITT'S LYMPHOMA
     Route: 048
  2. CYCLOPHOSPHAMIDE [Concomitant]
     Indication: BURKITT'S LYMPHOMA
     Route: 065
  3. VINCRISTINE SULFATE [Concomitant]
     Indication: BURKITT'S LYMPHOMA
     Route: 065
  4. DOXORUBICIN [Concomitant]
     Indication: BURKITT'S LYMPHOMA
     Route: 065

REACTIONS (3)
  - INTRA-ABDOMINAL HAEMORRHAGE [None]
  - REVERSIBLE POSTERIOR LEUKOENCEPHALOPATHY SYNDROME [None]
  - SEPSIS [None]
